FAERS Safety Report 21611257 (Version 1)
Quarter: 2022Q4

REPORT INFORMATION
  Report Type: Spontaneous
  Country: US (occurrence: US)
  Receive Date: 20221117
  Receipt Date: 20221117
  Transmission Date: 20230113
  Serious: No
  Sender: FDA-Public Use
  Company Number: US-SA-SAC20221115001775

PATIENT
  Age: 59 Year
  Sex: Female

DRUGS (11)
  1. DUPIXENT [Suspect]
     Active Substance: DUPILUMAB
     Indication: Arthralgia
     Dosage: 300 MG, QOW
     Route: 058
  2. BREO ELLIPTA [Concomitant]
     Active Substance: FLUTICASONE FUROATE\VILANTEROL TRIFENATATE
  3. CLONAZEPAM [Concomitant]
     Active Substance: CLONAZEPAM
  4. DIAZEPAM [Concomitant]
     Active Substance: DIAZEPAM
  5. ALBUTEROL\IPRATROPIUM [Concomitant]
     Active Substance: ALBUTEROL\IPRATROPIUM
  6. LYRICA [Concomitant]
     Active Substance: PREGABALIN
  7. METOPROLOL [Concomitant]
     Active Substance: METOPROLOL
  8. MORPHINE SULFATE [Concomitant]
     Active Substance: MORPHINE SULFATE
  9. OXYCODONE [Concomitant]
     Active Substance: OXYCODONE
  10. PREDNISONE [Concomitant]
     Active Substance: PREDNISONE
  11. VENTOLIN HFA [Concomitant]
     Active Substance: ALBUTEROL SULFATE

REACTIONS (2)
  - Product dose omission in error [Unknown]
  - Product use in unapproved indication [Unknown]

NARRATIVE: CASE EVENT DATE: 20221027
